FAERS Safety Report 9332473 (Version 1)
Quarter: 2013Q2

REPORT INFORMATION
  Report Type: Spontaneous
  Country: CA (occurrence: CA)
  Receive Date: 20130606
  Receipt Date: 20130606
  Transmission Date: 20140414
  Serious: Yes (Disabling, Other)
  Sender: FDA-Public Use
  Company Number: CA-JNJFOC-20130523316

PATIENT
  Age: 39 Year
  Sex: Female
  Weight: 85 kg

DRUGS (9)
  1. IMODIUM [Suspect]
     Route: 065
  2. IMODIUM [Suspect]
     Indication: PRODUCT USED FOR UNKNOWN INDICATION
     Route: 065
  3. VELCADE [Suspect]
     Indication: PRODUCT USED FOR UNKNOWN INDICATION
     Route: 042
  4. ACYCLOVIR [Concomitant]
     Route: 065
  5. TRIAMCINOLONE DIACETATE [Concomitant]
     Route: 065
  6. ATIVAN [Concomitant]
     Route: 065
  7. DEXAMETHASONE [Concomitant]
     Route: 065
  8. DILAUDID [Concomitant]
     Route: 065
  9. TRIAMCINOLONE [Concomitant]
     Indication: PRODUCT USED FOR UNKNOWN INDICATION
     Route: 065

REACTIONS (2)
  - Blepharitis [Recovered/Resolved]
  - Cellulitis [Recovered/Resolved]
